FAERS Safety Report 13523681 (Version 2)
Quarter: 2018Q1

REPORT INFORMATION
  Report Type: Spontaneous
  Country: US (occurrence: US)
  Receive Date: 20170508
  Receipt Date: 20180214
  Transmission Date: 20180508
  Serious: No
  Sender: FDA-Public Use
  Company Number: US-VIFOR (INTERNATIONAL) INC.-VIT-2017-01192

PATIENT
  Sex: Male

DRUGS (16)
  1. GLIPIZIDE. [Concomitant]
     Active Substance: GLIPIZIDE
  2. ALLOPURINOL. [Concomitant]
     Active Substance: ALLOPURINOL
  3. ACETYLSALICYLIC ACID [Concomitant]
     Active Substance: ASPIRIN
  4. CALCITRIOL. [Concomitant]
     Active Substance: CALCITRIOL
  5. KLONOPIN [Concomitant]
     Active Substance: CLONAZEPAM
  6. XYZAL [Concomitant]
     Active Substance: LEVOCETIRIZINE DIHYDROCHLORIDE
  7. COZAAR [Concomitant]
     Active Substance: LOSARTAN POTASSIUM
  8. LASIX [Concomitant]
     Active Substance: FUROSEMIDE
  9. ERGOCALCIFEROL. [Concomitant]
     Active Substance: ERGOCALCIFEROL
  10. VELTASSA [Suspect]
     Active Substance: PATIROMER
     Indication: HYPERKALAEMIA
     Route: 048
     Dates: start: 20160913
  11. CORGARD [Concomitant]
     Active Substance: NADOLOL
  12. JANUVIA [Concomitant]
     Active Substance: SITAGLIPTIN PHOSPHATE
  13. LIPITOR [Concomitant]
     Active Substance: ATORVASTATIN CALCIUM
  14. VELTASSA [Suspect]
     Active Substance: PATIROMER
     Route: 048
  15. LOPID [Concomitant]
     Active Substance: GEMFIBROZIL
  16. ZOLOFT [Concomitant]
     Active Substance: SERTRALINE HYDROCHLORIDE

REACTIONS (1)
  - Diarrhoea [Unknown]
